FAERS Safety Report 5270326-0 (Version None)
Quarter: 2007Q1

REPORT INFORMATION
  Report Type: 
  Country: None (occurrence: None)
  Receive Date: 20070314
  Receipt Date: 20070226
  Transmission Date: 20070707
  Serious: Yes (Hospitalization)
  Sender: FDA-Public Use
  Company Number: 237994

PATIENT
  Age: 42 Year
  Sex: Female
  Weight: 89 kg

DRUGS (10)
  1. HERCEPTIN [Suspect]
     Indication: BREAST CANCER
     Dosage: SEE IMAGE
     Route: 042
     Dates: start: 20061116
  2. CAPECITABINE (CAPECITABINE) [Suspect]
     Indication: BREAST CANCER
     Dosage: 3500 MG, BID, ORAL
     Route: 048
     Dates: start: 20070209
  3. DOCETAXEL (DOCETAXEL) [Suspect]
     Indication: BREAST CANCER
     Dosage: 152 MG,, INTRAVENOUS
     Route: 042
     Dates: start: 20070208
  4. EPIRUBICIN [Suspect]
     Indication: BREAST CANCER
     Dosage: 170 MG, , INTRAVENOUS
     Route: 042
     Dates: start: 20061116
  5. CYCLOPHOSPHAMIDE [Suspect]
     Indication: BREAST CANCER
     Dosage: 1194 MG, INTRAVENOUS
     Route: 042
     Dates: start: 20061116
  6. FRAXIPARIN (HEPARIN CALCIUM) [Concomitant]
  7. METOCLOPRAMIDE (METOCLOPRAMIDE HYDROCHLORIDE) [Concomitant]
  8. DIMENHYDRINATE [Concomitant]
  9. PANTOPRAZOLE SODIUM [Concomitant]
  10. LEVOTHYROXINE SODIUM [Concomitant]

REACTIONS (2)
  - SYNCOPE [None]
  - TACHYCARDIA [None]
